FAERS Safety Report 21701314 (Version 1)
Quarter: 2022Q4

REPORT INFORMATION
  Report Type: Spontaneous
  Country: US (occurrence: None)
  Receive Date: 20221208
  Receipt Date: 20221208
  Transmission Date: 20230113
  Serious: Yes (Other)
  Sender: FDA-Public Use
  Company Number: None

PATIENT
  Age: 5 Year
  Sex: Female

DRUGS (1)
  1. CEFTRIAXONE [Suspect]
     Active Substance: CEFTRIAXONE
     Indication: Ear infection
     Dates: start: 20221114, end: 20221115

REACTIONS (11)
  - Pain in extremity [None]
  - Back pain [None]
  - Arthralgia [None]
  - Abdominal pain [None]
  - Dyspnoea [None]
  - Heart rate increased [None]
  - Pyrexia [None]
  - Chills [None]
  - Cyanosis [None]
  - Epistaxis [None]
  - Thrombosis [None]

NARRATIVE: CASE EVENT DATE: 20221114
